FAERS Safety Report 11784760 (Version 2)
Quarter: 2015Q4

REPORT INFORMATION
  Report Type: Spontaneous
  Country: CA (occurrence: CA)
  Receive Date: 20151130
  Receipt Date: 20151209
  Transmission Date: 20160305
  Serious: Yes (Hospitalization)
  Sender: FDA-Public Use
  Company Number: CA-ROCHE-1669101

PATIENT
  Age: 59 Year
  Sex: Female

DRUGS (6)
  1. CHAMPIX [Concomitant]
     Active Substance: VARENICLINE TARTRATE
  2. CLARITIN [Concomitant]
     Active Substance: LORATADINE
  3. BENADRYL [Concomitant]
     Active Substance: DIPHENHYDRAMINE HYDROCHLORIDE
  4. PROMETRIUM [Concomitant]
     Active Substance: PROGESTERONE
  5. ESTROGEL [Concomitant]
     Active Substance: ESTRADIOL
  6. XOLAIR [Suspect]
     Active Substance: OMALIZUMAB
     Indication: ANAPHYLACTIC REACTION
     Route: 058
     Dates: start: 20150914, end: 20151124

REACTIONS (2)
  - Cerebrovascular accident [Recovered/Resolved]
  - Off label use [Unknown]

NARRATIVE: CASE EVENT DATE: 20151123
